FAERS Safety Report 6453591-3 (Version None)
Quarter: 2009Q4

REPORT INFORMATION
  Report Type: 
  Country: None (occurrence: None)
  Receive Date: 20091117
  Receipt Date: 20091102
  Transmission Date: 20100525
  Serious: Yes (Other)
  Sender: FDA-Public Use
  Company Number: 2009SP033857

PATIENT
  Sex: Female

DRUGS (1)
  1. TEMODAL [Suspect]
     Indication: GLIOBLASTOMA

REACTIONS (3)
  - BLINDNESS [None]
  - GENERAL PHYSICAL HEALTH DETERIORATION [None]
  - HEMIPLEGIA [None]
